FAERS Safety Report 9298442 (Version 4)
Quarter: 2013Q3

REPORT INFORMATION
  Report Type: Spontaneous
  Country: FR (occurrence: FR)
  Receive Date: 20130520
  Receipt Date: 20130725
  Transmission Date: 20140515
  Serious: Yes (Death, Hospitalization)
  Sender: FDA-Public Use
  Company Number: FR-ASTRAZENECA-2013SE29245

PATIENT
  Age: 29461 Day
  Sex: Female
  Weight: 69 kg

DRUGS (14)
  1. BRILIQUE [Suspect]
     Indication: ACUTE CORONARY SYNDROME
     Route: 048
     Dates: start: 20130422, end: 20130423
  2. KARDEGIC [Suspect]
     Route: 048
     Dates: start: 20130422
  3. LOVENOX [Suspect]
     Dosage: 6,000 IU ANTI-XA/0.6 ML PER DOSE, TWO TIMES PER DAY
     Route: 058
     Dates: start: 20130422, end: 20130423
  4. HEPARIN SODIUM [Suspect]
     Route: 042
     Dates: start: 20130423, end: 20130423
  5. PLAVIX [Suspect]
     Route: 048
     Dates: start: 20130422, end: 20130422
  6. ASPERGIC [Suspect]
     Route: 042
     Dates: start: 20130423, end: 20130423
  7. ACEBUTOLOL [Concomitant]
  8. PRAVASTATINE [Concomitant]
  9. GLUCOR [Concomitant]
  10. EUPANTOL [Concomitant]
  11. LOSARTAN [Concomitant]
  12. FUROSEMIDE [Concomitant]
  13. DOLIPRANE [Concomitant]
     Indication: PAIN
  14. OMEPRAZOLE [Concomitant]

REACTIONS (3)
  - Extradural haematoma [Fatal]
  - Renal failure acute [Fatal]
  - Cardio-respiratory arrest [Fatal]
